FAERS Safety Report 6531082-9 (Version None)
Quarter: 2010Q1

REPORT INFORMATION
  Report Type: 
  Country: None (occurrence: None)
  Receive Date: 20100108
  Receipt Date: 20091230
  Transmission Date: 20100710
  Serious: Yes (Other)
  Sender: FDA-Public Use
  Company Number: US-TEVA-219621USA

PATIENT
  Sex: Female
  Weight: 65.376 kg

DRUGS (1)
  1. CLARAVIS [Suspect]
     Route: 048
     Dates: start: 20091028, end: 20091230

REACTIONS (1)
  - UNINTENDED PREGNANCY [None]
